FAERS Safety Report 13523429 (Version 3)
Quarter: 2017Q4

REPORT INFORMATION
  Report Type: Spontaneous
  Country: US (occurrence: US)
  Receive Date: 20170508
  Receipt Date: 20171207
  Transmission Date: 20180320
  Serious: No
  Sender: FDA-Public Use
  Company Number: US-VIFOR (INTERNATIONAL) INC.-VIT-2017-03912

PATIENT
  Age: 83 Year
  Sex: Male
  Weight: 50.85 kg

DRUGS (17)
  1. COLCRYS [Concomitant]
     Active Substance: COLCHICINE
  2. ASCORBIC ACID. [Concomitant]
     Active Substance: ASCORBIC ACID
  3. NIROSTAT [Concomitant]
  4. OMEPRAZOLE. [Concomitant]
     Active Substance: OMEPRAZOLE
  5. VELTASSA [Suspect]
     Active Substance: PATIROMER
     Indication: HYPERKALAEMIA
     Route: 048
     Dates: start: 20170202, end: 20170213
  6. DOCUSATE [Concomitant]
     Active Substance: DOCUSATE
  7. VELTASSA [Suspect]
     Active Substance: PATIROMER
     Route: 048
     Dates: start: 20170220
  8. VELTASSA [Suspect]
     Active Substance: PATIROMER
     Dosage: INCREASED DOSE
     Route: 048
  9. FOSINOPRIL [Concomitant]
     Active Substance: FOSINOPRIL
  10. SENNOSIDE A+B [Concomitant]
     Active Substance: SENNOSIDES A AND B
  11. CALCITRIOL. [Concomitant]
     Active Substance: CALCITRIOL
  12. NOVOLOG [Concomitant]
     Active Substance: INSULIN ASPART
  13. ACETYLSALICYLIC ACID [Concomitant]
     Active Substance: ASPIRIN
  14. CALCIUM [Concomitant]
     Active Substance: CALCIUM
  15. LASIX [Concomitant]
     Active Substance: FUROSEMIDE
  16. PRAVASTATIN. [Concomitant]
     Active Substance: PRAVASTATIN
  17. PREDNISONE. [Concomitant]
     Active Substance: PREDNISONE

REACTIONS (4)
  - Drug ineffective [Not Recovered/Not Resolved]
  - Inappropriate schedule of drug administration [Recovered/Resolved]
  - Nausea [Recovered/Resolved]
  - Vomiting [Recovered/Resolved]

NARRATIVE: CASE EVENT DATE: 20170213
